FAERS Safety Report 22293182 (Version 1)
Quarter: 2023Q2

REPORT INFORMATION
  Report Type: Spontaneous
  Country: CN (occurrence: CN)
  Receive Date: 20230508
  Receipt Date: 20230508
  Transmission Date: 20230722
  Serious: Yes (Hospitalization)
  Sender: FDA-Public Use
  Company Number: CN-SA-2023SA138525

PATIENT
  Age: 56 Year
  Sex: Female
  Weight: 70 kg

DRUGS (1)
  1. CLOPIDOGREL BISULFATE [Suspect]
     Active Substance: CLOPIDOGREL BISULFATE
     Indication: Thrombosis prophylaxis
     Dosage: 75MG , QD
     Route: 048
     Dates: start: 20230313, end: 20230420

REACTIONS (4)
  - Brain natriuretic peptide increased [Unknown]
  - Generalised oedema [Unknown]
  - Ecchymosis [Unknown]
  - Petechiae [Unknown]

NARRATIVE: CASE EVENT DATE: 20230401
